FAERS Safety Report 9292911 (Version 1)
Quarter: 2013Q2

REPORT INFORMATION
  Report Type: Spontaneous
  Country: US (occurrence: None)
  Receive Date: 20130515
  Receipt Date: 20130515
  Transmission Date: 20140414
  Serious: Yes (Other)
  Sender: FDA-Public Use
  Company Number: None

PATIENT
  Age: 36 Year
  Sex: Female
  Weight: 70.31 kg

DRUGS (1)
  1. BOTOX [Suspect]
     Dosage: 20 UNITS EVERY 3 MONTHS ID
     Dates: start: 20130201, end: 20130501

REACTIONS (6)
  - Fatigue [None]
  - Headache [None]
  - Anxiety [None]
  - Stress [None]
  - Myalgia [None]
  - Night sweats [None]
